FAERS Safety Report 5017892-8 (Version None)
Quarter: 2006Q2

REPORT INFORMATION
  Report Type: 
  Country: None (occurrence: None)
  Receive Date: 20060602
  Receipt Date: 20060602
  Transmission Date: 20061013
  Serious: No
  Sender: FDA-Public Use
  Company Number: None

PATIENT
  Age: 27 Year
  Sex: Male
  Weight: 70.3075 kg

DRUGS (1)
  1. ZOLOFT [Suspect]
     Indication: DEPRESSION
     Dosage: 25 MG  QD PO
     Route: 048
     Dates: start: 20040401, end: 20050101

REACTIONS (3)
  - ERECTILE DYSFUNCTION [None]
  - FEELING ABNORMAL [None]
  - LIBIDO DECREASED [None]
